FAERS Safety Report 20500203 (Version 3)
Quarter: 2022Q1

REPORT INFORMATION
  Report Type: Report from Study
  Country: DE (occurrence: DE)
  Receive Date: 20220222
  Receipt Date: 20220307
  Transmission Date: 20220424
  Serious: Yes (Life-Threatening, Hospitalization, Other)
  Sender: FDA-Public Use
  Company Number: DE-BRISTOL-MYERS SQUIBB COMPANY-BMS-2022-025543

PATIENT
  Age: 67 Year
  Sex: Male

DRUGS (3)
  1. NIVOLUMAB [Suspect]
     Active Substance: NIVOLUMAB
     Indication: Malignant melanoma
     Dosage: 240 MILLIGRAM, Q2WK
     Route: 042
     Dates: start: 20180213, end: 20210804
  2. NIVOLUMAB [Suspect]
     Active Substance: NIVOLUMAB
     Dosage: 480 MILLIGRAM
     Route: 042
     Dates: start: 20220111
  3. HYDROCORTISONE [Concomitant]
     Active Substance: HYDROCORTISONE
     Indication: Product used for unknown indication
     Route: 065

REACTIONS (5)
  - Adrenocortical insufficiency acute [Recovering/Resolving]
  - Autoimmune pancreatitis [Recovering/Resolving]
  - Diarrhoea [Unknown]
  - Nausea [Unknown]
  - Body temperature increased [Unknown]

NARRATIVE: CASE EVENT DATE: 20210825
